FAERS Safety Report 6442789-6 (Version None)
Quarter: 2009Q4

REPORT INFORMATION
  Report Type: 
  Country: None (occurrence: None)
  Receive Date: 20091117
  Receipt Date: 20091112
  Transmission Date: 20100525
  Serious: Yes (Death, Other)
  Sender: FDA-Public Use
  Company Number: PHEH2009US15216

PATIENT
  Sex: Female

DRUGS (1)
  1. EXJADE [Suspect]
     Indication: HEREDITARY HAEMOCHROMATOSIS
     Dosage: 125 MG, QW2
     Route: 048
     Dates: start: 20080601

REACTIONS (6)
  - FALL [None]
  - HIP FRACTURE [None]
  - HIP SURGERY [None]
  - POST PROCEDURAL COMPLICATION [None]
  - POST PROCEDURAL INFECTION [None]
  - SERUM FERRITIN INCREASED [None]
